FAERS Safety Report 8950882 (Version 1)
Quarter: 2012Q4

REPORT INFORMATION
  Report Type: Spontaneous
  Country: GB (occurrence: None)
  Receive Date: 20121108
  Receipt Date: 20121108
  Transmission Date: 20130627
  Serious: Yes (Other)
  Sender: FDA-Public Use
  Company Number: QR65936-01

PATIENT
  Sex: Male

DRUGS (1)
  1. GAMMAPLEX [Suspect]
     Dosage: 5% Liquid
     Route: 042
     Dates: start: 20121027

REACTIONS (2)
  - Pyrexia [None]
  - Bacterial test positive [None]
